FAERS Safety Report 7784541-5 (Version None)
Quarter: 2011Q3

REPORT INFORMATION
  Report Type: 
  Country: None (occurrence: None)
  Receive Date: 20110928
  Receipt Date: 20110914
  Transmission Date: 20111222
  Serious: No
  Sender: FDA-Public Use
  Company Number: US-B.I. PHARMACEUTICALS,INC./RIDGEFIELD-2011-BP-19273BP

PATIENT
  Age: 87 Year
  Sex: Male

DRUGS (6)
  1. ATENOLOL [Concomitant]
     Dosage: 100 MG
     Dates: start: 20110208
  2. POTASSIUM CHLORIDE [Concomitant]
     Dosage: 40 MEQ
     Dates: start: 20110409
  3. NIASPAN [Concomitant]
     Dates: start: 20110711
  4. PRADAXA [Suspect]
     Indication: ANTICOAGULANT THERAPY
     Dosage: 150 MG
     Dates: start: 20110329
  5. ARICEPT [Concomitant]
     Dosage: 10 MG
     Dates: start: 20110330
  6. LASIX [Concomitant]
     Dosage: 80 MG
     Dates: start: 20110208

REACTIONS (2)
  - ABDOMINAL DISCOMFORT [None]
  - SKIN DISCOLOURATION [None]
